FAERS Safety Report 18482367 (Version 1)
Quarter: 2020Q4

REPORT INFORMATION
  Report Type: Spontaneous
  Country: US (occurrence: US)
  Receive Date: 20201110
  Receipt Date: 20201110
  Transmission Date: 20210114
  Serious: Yes (Other)
  Sender: FDA-Public Use
  Company Number: US-SUN PHARMACEUTICAL INDUSTRIES LTD-2020R1-267053

PATIENT
  Age: 29 Year
  Sex: Female

DRUGS (2)
  1. FIORICET [Suspect]
     Active Substance: ACETAMINOPHEN\BUTALBITAL\CAFFEINE
     Indication: NEOPLASM
     Dosage: UNK
     Route: 065
  2. ACETAZOLAMIDE. [Suspect]
     Active Substance: ACETAZOLAMIDE
     Indication: NEOPLASM
     Dosage: 1000 MILLIGRAM, DAILY
     Route: 065

REACTIONS (2)
  - Artificial rupture of membranes [Unknown]
  - Exposure during pregnancy [Unknown]
